FAERS Safety Report 9492163 (Version 1)
Quarter: 2013Q3

REPORT INFORMATION
  Report Type: Spontaneous
  Country: US (occurrence: US)
  Receive Date: 20130830
  Receipt Date: 20130830
  Transmission Date: 20140515
  Serious: No
  Sender: FDA-Public Use
  Company Number: US-PFIZER INC-2013248568

PATIENT
  Sex: Female

DRUGS (3)
  1. XANAX [Suspect]
     Dosage: UNK, THREE TIMES A DAY
  2. ZOLOFT [Suspect]
     Dosage: 25 MG, 3X/DAY
  3. ZOLOFT [Suspect]
     Dosage: 50 MG, 3X/DAY

REACTIONS (3)
  - Presyncope [Unknown]
  - Palpitations [Unknown]
  - Pain in extremity [Unknown]
